FAERS Safety Report 9012474 (Version 2)
Quarter: 2013Q1

REPORT INFORMATION
  Report Type: Spontaneous
  Country: US (occurrence: US)
  Receive Date: 20130114
  Receipt Date: 20130325
  Transmission Date: 20140127
  Serious: Yes (Hospitalization)
  Sender: FDA-Public Use
  Company Number: US-ASTRAZENECA-2013SE01426

PATIENT
  Age: 78 Year
  Sex: Male

DRUGS (8)
  1. TOPROL XL [Suspect]
     Indication: HYPERTENSION
     Route: 048
     Dates: start: 201209
  2. TOPROL XL [Suspect]
     Indication: HYPERTENSION
     Route: 048
  3. TOPROL XL [Suspect]
     Indication: HYPERTENSION
     Route: 048
  4. LABETALOL [Concomitant]
     Indication: HYPERTENSION
     Dates: end: 201209
  5. LABETALOL [Concomitant]
     Indication: HYPERTENSION
  6. TORSEMIDE [Concomitant]
     Indication: HYPERTENSION
  7. TORSEMIDE [Concomitant]
     Indication: HYPERTENSION
     Dosage: UNKNOWN DOSE, TWICE A WEEK
  8. TORSEMIDE [Concomitant]
     Indication: HYPERTENSION
     Dosage: UNKNOWN DOSE, AS NEEDED

REACTIONS (4)
  - Pleural effusion [Recovered/Resolved]
  - Dyspnoea [Recovering/Resolving]
  - Fatigue [Unknown]
  - Heart rate decreased [Unknown]
